FAERS Safety Report 13884005 (Version 2)
Quarter: 2017Q3

REPORT INFORMATION
  Report Type: Spontaneous
  Country: DE (occurrence: DE)
  Receive Date: 20170820
  Receipt Date: 20170829
  Transmission Date: 20171127
  Serious: Yes (Hospitalization, Other)
  Sender: FDA-Public Use
  Company Number: DE-MYLANLABS-2017M1050392

PATIENT

DRUGS (4)
  1. CLARITHROMYCIN MYLAN [Suspect]
     Active Substance: CLARITHROMYCIN
     Indication: PNEUMONIA
     Dosage: UNK, TID
     Route: 048
     Dates: start: 20170726
  2. ABILIFY MAINTENA [Interacting]
     Active Substance: ARIPIPRAZOLE
     Indication: BIPOLAR DISORDER
     Dosage: UNK, MONTHLY
     Route: 030
  3. METOPROLOL SUCCINATE. [Concomitant]
     Active Substance: METOPROLOL SUCCINATE
     Indication: CARDIAC FAILURE
     Dosage: UNK, QD
     Route: 048
  4. PANTOPRAZOL [Concomitant]
     Active Substance: PANTOPRAZOLE SODIUM
     Indication: PRODUCT USED FOR UNKNOWN INDICATION
     Dosage: UNK, QD
     Route: 048

REACTIONS (12)
  - Long QT syndrome [Unknown]
  - Somnolence [Recovering/Resolving]
  - Staphylococcal infection [Unknown]
  - Candida infection [Unknown]
  - Blood pressure fluctuation [Recovering/Resolving]
  - Neuroleptic malignant syndrome [Unknown]
  - Sinus node dysfunction [Unknown]
  - Drug interaction [Unknown]
  - Respiratory failure [Unknown]
  - Hypothermia [Recovering/Resolving]
  - Stupor [Recovering/Resolving]
  - Serratia infection [Unknown]

NARRATIVE: CASE EVENT DATE: 20170726
